FAERS Safety Report 8455248-6 (Version None)
Quarter: 2012Q2

REPORT INFORMATION
  Report Type: 
  Country: None (occurrence: None)
  Receive Date: 20120621
  Receipt Date: 20120618
  Transmission Date: 20120825
  Serious: Yes (Hospitalization)
  Sender: FDA-Public Use
  Company Number: US-SP-2012-02703

PATIENT
  Sex: Male

DRUGS (6)
  1. THERACYS [Suspect]
     Indication: BLADDER CANCER
     Route: 065
     Dates: start: 20120213, end: 20120227
  2. AMIODARONE HYDROCHLORIDE [Concomitant]
     Route: 065
  3. LISINOPRIL [Concomitant]
     Route: 065
  4. PROPRANOLOL [Concomitant]
     Route: 065
  5. SIMVASTATIN [Concomitant]
     Route: 065
  6. ASPIRIN [Concomitant]
     Route: 065

REACTIONS (4)
  - HAEMORRHAGE URINARY TRACT [None]
  - INAPPROPRIATE SCHEDULE OF DRUG ADMINISTRATION [None]
  - DIZZINESS [None]
  - HAEMATURIA [None]
